FAERS Safety Report 13781374 (Version 1)
Quarter: 2017Q3

REPORT INFORMATION
  Report Type: Spontaneous
  Country: US (occurrence: US)
  Receive Date: 20170721
  Receipt Date: 20170721
  Transmission Date: 20171127
  Serious: No
  Sender: FDA-Public Use
  Company Number: None

PATIENT
  Age: 72 Year
  Sex: Female

DRUGS (20)
  1. OCALIVA [Suspect]
     Active Substance: OBETICHOLIC ACID
     Indication: BILIARY CIRRHOSIS PRIMARY
     Route: 048
     Dates: start: 20170223, end: 201707
  2. IBUPROFEN. [Concomitant]
     Active Substance: IBUPROFEN
  3. EZETIMBE [Concomitant]
     Active Substance: EZETIMIBE
  4. URSODIOL. [Concomitant]
     Active Substance: URSODIOL
  5. VALSARTAN. [Concomitant]
     Active Substance: VALSARTAN
  6. APRAZOLAM [Concomitant]
  7. VITAMIN C [Concomitant]
     Active Substance: ASCORBIC ACID
  8. VITAMIN E [Concomitant]
     Active Substance: .ALPHA.-TOCOPHEROL
  9. MILK THISTLE [Concomitant]
     Active Substance: MILK THISTLE
  10. MIRALAX [Concomitant]
     Active Substance: POLYETHYLENE GLYCOL 3350
  11. TRIAMCINOLON CRE [Concomitant]
  12. ASPIRIN. [Concomitant]
     Active Substance: ASPIRIN
  13. SENOSIDES [Concomitant]
  14. SILENOR [Suspect]
     Active Substance: DOXEPIN HYDROCHLORIDE
  15. OMEPRAZOLE. [Concomitant]
     Active Substance: OMEPRAZOLE
  16. VITAMIN D [Concomitant]
     Active Substance: CHOLECALCIFEROL
  17. OMEGA [Concomitant]
     Active Substance: CONVALLARIA MAJALIS\CRATAEGUS LAEVIGATA LEAF\PROXYPHYLLINE
  18. VITAMIN B COMPLEX [Concomitant]
     Active Substance: CYANOCOBALAMIN\DEXPANTHENOL\NIACINAMIDE\PYRIDOXINE HYDROCHLORIDE\RIBOFLAVIN 5^-PHOSPHATE SODIUM\THIAMINE HYDROCHLORIDE\VITAMIN B COMPLEX
  19. HYDROXYZ HCL [Concomitant]
     Active Substance: HYDROXYZINE HYDROCHLORIDE
  20. DESONDE [Concomitant]

REACTIONS (3)
  - Therapy cessation [None]
  - Head discomfort [None]
  - Pruritus [None]

NARRATIVE: CASE EVENT DATE: 201707
